FAERS Safety Report 6538162-2 (Version None)
Quarter: 2010Q1

REPORT INFORMATION
  Report Type: 
  Country: None (occurrence: None)
  Receive Date: 20100112
  Receipt Date: 20100112
  Transmission Date: 20100710
  Serious: No
  Sender: FDA-Public Use
  Company Number: None

PATIENT
  Sex: Male
  Weight: 51.11 kg

DRUGS (6)
  1. PEG-L-ASPARAGINASE (PEGASPARGASE, ONCASPAR) [Suspect]
     Dosage: 2115 IU
     Dates: end: 20100105
  2. VINCRISTINE [Suspect]
     Dosage: 2 MG
     Dates: end: 20100104
  3. CYCLOPHOSPHAMIDE [Suspect]
     Dosage: 1410 MG
     Dates: end: 20091221
  4. CYTARABINE [Suspect]
     Dosage: 800 MG
     Dates: end: 20091231
  5. MERCAPTOPURINE [Suspect]
     Dosage: 1200 MG
     Dates: end: 20100103
  6. METHOTREXATE [Suspect]
     Dosage: 45 MG
     Dates: end: 20100104

REACTIONS (2)
  - HYPERSENSITIVITY [None]
  - INFUSION RELATED REACTION [None]
